FAERS Safety Report 10223406 (Version 1)
Quarter: 2014Q2

REPORT INFORMATION
  Report Type: Spontaneous
  Country: IT (occurrence: IT)
  Receive Date: 20140609
  Receipt Date: 20140609
  Transmission Date: 20141212
  Serious: Yes (Other)
  Sender: FDA-Public Use
  Company Number: IT-009507513-1406ITA003186

PATIENT
  Age: 53 Year
  Sex: Female

DRUGS (1)
  1. LORTAAN 50 MG COMPRESSE RIVESTITE CON FILM [Suspect]
     Indication: HYPERTENSION
     Dosage: 50 MG, QD
     Route: 048
     Dates: start: 20140110, end: 20140601

REACTIONS (1)
  - Biliary colic [Recovered/Resolved]
